FAERS Safety Report 6134285-0 (Version None)
Quarter: 2009Q1

REPORT INFORMATION
  Report Type: 
  Country: None (occurrence: None)
  Receive Date: 20090325
  Receipt Date: 20090313
  Transmission Date: 20090719
  Serious: Yes (Other)
  Sender: FDA-Public Use
  Company Number: 2009-01038

PATIENT
  Sex: Female

DRUGS (1)
  1. VELCADE [Suspect]
     Indication: DRUG USE FOR UNKNOWN INDICATION

REACTIONS (3)
  - EYE SWELLING [None]
  - HERPES ZOSTER [None]
  - PHARYNGEAL OEDEMA [None]
